FAERS Safety Report 23482776 (Version 24)
Quarter: 2025Q3

REPORT INFORMATION
  Report Type: Spontaneous
  Country: IN (occurrence: IN)
  Receive Date: 20240205
  Receipt Date: 20250917
  Transmission Date: 20251021
  Serious: Yes (Other)
  Sender: PFIZER
  Company Number: IN-PFIZER INC-PV202400015401

PATIENT
  Age: 49 Year
  Sex: Male

DRUGS (19)
  1. LORLATINIB [Suspect]
     Active Substance: LORLATINIB
     Indication: Lung neoplasm malignant
     Route: 048
     Dates: start: 20240125
  2. LORLATINIB [Suspect]
     Active Substance: LORLATINIB
     Dosage: 100 MG, 1X/DAY
     Route: 048
     Dates: start: 20240126
  3. LORLATINIB [Suspect]
     Active Substance: LORLATINIB
     Route: 048
     Dates: start: 202401
  4. LORLATINIB [Suspect]
     Active Substance: LORLATINIB
     Dates: start: 20240410
  5. LORLATINIB [Suspect]
     Active Substance: LORLATINIB
     Dosage: 100 MG, 1X/DAY
     Route: 048
     Dates: start: 20250606
  6. LORLATINIB [Suspect]
     Active Substance: LORLATINIB
     Dosage: 100 MG, 1X/DAY
     Route: 048
     Dates: start: 20250909
  7. DEXAMETHASONE [Concomitant]
     Active Substance: DEXAMETHASONE
  8. PANTOPRAZOLE [Concomitant]
     Active Substance: PANTOPRAZOLE
  9. PANTOPRAZOLE [Concomitant]
     Active Substance: PANTOPRAZOLE
     Dosage: 40 MG, 1X/DAY
     Dates: start: 20250606
  10. PANTOPRAZOLE [Concomitant]
     Active Substance: PANTOPRAZOLE
     Dosage: 40 MG, 1X/DAY
     Dates: start: 20250909
  11. LEVETIRACETAM [Concomitant]
     Active Substance: LEVETIRACETAM
  12. EPTOIN [Concomitant]
     Active Substance: PHENYTOIN SODIUM
     Dosage: 100 MG, 3X/DAY
  13. TAPAL [TAPENTADOL HYDROCHLORIDE] [Concomitant]
     Indication: Pain
     Dosage: 100 MG, 2X/DAY ((MAX 3 TAB/DAY. 8 HOURLY)
     Dates: start: 20250606
  14. TAPAL [TAPENTADOL HYDROCHLORIDE] [Concomitant]
     Dosage: 100 MG, 2X/DAY (TWICE A DAY- 8:00AM AND  8:00 PM)
     Dates: start: 20250909
  15. ROSUVASTATIN CALCIUM [Concomitant]
     Active Substance: ROSUVASTATIN CALCIUM
     Dosage: 10 MG, 1X/DAY
     Dates: start: 20250606
  16. ROSUVASTATIN CALCIUM [Concomitant]
     Active Substance: ROSUVASTATIN CALCIUM
     Dosage: 10 MG, 1X/DAY
     Dates: start: 20250909
  17. BENZYDAMINE [Concomitant]
     Active Substance: BENZYDAMINE
     Indication: Mouth ulceration
  18. ASPIRIN [Concomitant]
     Active Substance: ASPIRIN
     Indication: Mouth ulceration
  19. LOPERAMIDE [Concomitant]
     Active Substance: LOPERAMIDE
     Indication: Diarrhoea

REACTIONS (65)
  - Hydrocele male infected [Unknown]
  - Hydrocele [Recovered/Resolved]
  - Diabetes mellitus [Unknown]
  - Metastases to spine [Unknown]
  - Asthenia [Recovering/Resolving]
  - Gait inability [Unknown]
  - Balance disorder [Recovering/Resolving]
  - Speech disorder [Recovered/Resolved]
  - Memory impairment [Unknown]
  - Constipation [Unknown]
  - Cerebral disorder [Unknown]
  - Muscle tightness [Unknown]
  - Depression [Unknown]
  - Flatulence [Unknown]
  - Abdominal distension [Unknown]
  - Dyspepsia [Unknown]
  - Weight fluctuation [Unknown]
  - Pain [Recovered/Resolved]
  - Anxiety [Unknown]
  - Stress [Unknown]
  - Tension [Unknown]
  - Performance status decreased [Unknown]
  - Dyspnoea exertional [Unknown]
  - Cough [Recovering/Resolving]
  - Nasopharyngitis [Recovered/Resolved]
  - Headache [Unknown]
  - Throat tightness [Unknown]
  - Insomnia [Recovering/Resolving]
  - Pain in extremity [Unknown]
  - Arthralgia [Unknown]
  - Oral pain [Unknown]
  - Chills [Unknown]
  - Dyspnoea [Recovering/Resolving]
  - Repetitive speech [Unknown]
  - Visual impairment [Unknown]
  - Back pain [Unknown]
  - Feeling abnormal [Unknown]
  - Loss of personal independence in daily activities [Unknown]
  - Decreased interest [Unknown]
  - Tinnitus [Unknown]
  - Heart rate increased [Unknown]
  - Language disorder [Unknown]
  - Generalised oedema [Recovering/Resolving]
  - Laboratory test abnormal [Unknown]
  - Movement disorder [Recovered/Resolved]
  - Cold-stimulus headache [Unknown]
  - Groin infection [Unknown]
  - Paraesthesia [Unknown]
  - Muscle twitching [Unknown]
  - Sitting disability [Unknown]
  - Joint stiffness [Unknown]
  - Pruritus [Unknown]
  - Skin discolouration [Recovering/Resolving]
  - Blood cholesterol increased [Unknown]
  - Blood triglycerides increased [Unknown]
  - Low density lipoprotein increased [Unknown]
  - Blood glucose increased [Unknown]
  - Sensory loss [Unknown]
  - Cyst rupture [Unknown]
  - Lipids abnormal [Unknown]
  - Body temperature decreased [Unknown]
  - Peripheral vascular disorder [Unknown]
  - Glycosylated haemoglobin increased [Unknown]
  - Platelet count decreased [Unknown]
  - Peripheral swelling [Unknown]

NARRATIVE: CASE EVENT DATE: 20240101
